FAERS Safety Report 5604188-6 (Version None)
Quarter: 2008Q1

REPORT INFORMATION
  Report Type: 
  Country: None (occurrence: None)
  Receive Date: 20080124
  Receipt Date: 20080110
  Transmission Date: 20080703
  Serious: Yes (Hospitalization)
  Sender: FDA-Public Use
  Company Number: US022079

PATIENT
  Age: 38 Year
  Sex: Male

DRUGS (5)
  1. PROVIGIL [Suspect]
     Dosage: ONCE ORAL
     Route: 048
  2. RISPERDAL [Concomitant]
  3. PROZAC [Concomitant]
  4. OXYCONTIN [Concomitant]
  5. METHADONE HCL [Concomitant]

REACTIONS (14)
  - DEEP VEIN THROMBOSIS [None]
  - DIALYSIS [None]
  - DIZZINESS [None]
  - HYPERKALAEMIA [None]
  - INSOMNIA [None]
  - LOSS OF CONSCIOUSNESS [None]
  - METABOLIC ACIDOSIS [None]
  - OVERDOSE [None]
  - PANCYTOPENIA [None]
  - PNEUMONIA [None]
  - PULMONARY EMBOLISM [None]
  - RENAL FAILURE [None]
  - RHABDOMYOLYSIS [None]
  - SUPRAVENTRICULAR TACHYCARDIA [None]
